FAERS Safety Report 21758973 (Version 2)
Quarter: 2023Q4

REPORT INFORMATION
  Report Type: Spontaneous
  Country: US (occurrence: US)
  Receive Date: 20221221
  Receipt Date: 20231130
  Transmission Date: 20240109
  Serious: No
  Sender: FDA-Public Use
  Company Number: US-BRISTOL-MYERS SQUIBB COMPANY-2022-156527

PATIENT
  Age: 79 Year
  Sex: Female
  Weight: 65.32 kg

DRUGS (6)
  1. REVLIMID [Suspect]
     Active Substance: LENALIDOMIDE
     Indication: Plasma cell myeloma
     Dosage: QD X 14 DAYS
     Route: 048
  2. REVLIMID [Suspect]
     Active Substance: LENALIDOMIDE
     Indication: Hypothyroidism
  3. DEXTON [DEXAMETHASONE] [Concomitant]
     Indication: Product used for unknown indication
     Route: 048
  4. POTASSIUM K 20 [Concomitant]
     Indication: Product used for unknown indication
     Route: 048
  5. ASPIRIN BP [Concomitant]
     Indication: Product used for unknown indication
     Route: 048
  6. ZINCO [ZINC] [Concomitant]
     Indication: Product used for unknown indication
     Route: 048

REACTIONS (2)
  - Pruritus [Unknown]
  - Rash [Unknown]
